FAERS Safety Report 13435423 (Version 1)
Quarter: 2017Q2

REPORT INFORMATION
  Report Type: Spontaneous
  Country: US (occurrence: US)
  Receive Date: 20170413
  Receipt Date: 20170413
  Transmission Date: 20170830
  Serious: Yes (Hospitalization, Other)
  Sender: FDA-Public Use
  Company Number: US-GLAXOSMITHKLINE-US2017050015

PATIENT
  Sex: Female

DRUGS (4)
  1. VENTOLIN HFA [Suspect]
     Active Substance: ALBUTEROL SULFATE
     Dosage: 2 PUFF(S), PRN
  2. VENTOLIN HFA [Suspect]
     Active Substance: ALBUTEROL SULFATE
     Indication: PRODUCT USED FOR UNKNOWN INDICATION
     Dosage: 2 PUFF(S), UNK
     Dates: start: 1992
  3. PULMICORT TURBUHALER [Concomitant]
     Active Substance: BUDESONIDE
  4. ADVAIR DISKUS [Suspect]
     Active Substance: FLUTICASONE PROPIONATE\SALMETEROL XINAFOATE
     Indication: PRODUCT USED FOR UNKNOWN INDICATION
     Dosage: UNK

REACTIONS (11)
  - Palpitations [Unknown]
  - Visual impairment [Unknown]
  - Conduction disorder [Unknown]
  - Mole excision [Unknown]
  - Catheterisation cardiac [Unknown]
  - Incorrect product storage [Unknown]
  - Hypoacusis [Unknown]
  - Bronchospasm [Unknown]
  - Heart rate increased [Unknown]
  - Cardiac ablation [Unknown]
  - Arrhythmia [Unknown]

NARRATIVE: CASE EVENT DATE: 1992
